FAERS Safety Report 5120181-4 (Version None)
Quarter: 2006Q4

REPORT INFORMATION
  Report Type: 
  Country: None (occurrence: None)
  Receive Date: 20061002
  Receipt Date: 20061002
  Transmission Date: 20070319
  Serious: No
  Sender: FDA-Public Use
  Company Number: None

PATIENT
  Sex: Female

DRUGS (10)
  1. PAXIL CR [Suspect]
     Indication: ANXIETY
     Dates: start: 20000101, end: 20060929
  2. PAXIL CR [Suspect]
     Indication: DEPRESSION
     Dates: start: 20000101, end: 20060929
  3. HYDROCHLOROTHIAZIDE [Concomitant]
  4. ELAVIL [Concomitant]
  5. PERCOCET 3/325 [Concomitant]
  6. ASPIRIN [Concomitant]
  7. METROGEL [Concomitant]
  8. TRETINOIN [Concomitant]
  9. CALCIUM + VIT D [Concomitant]
  10. TRIAMCINOLONE [Concomitant]

REACTIONS (3)
  - DRUG DOSE OMISSION [None]
  - PARAESTHESIA [None]
  - TREATMENT NONCOMPLIANCE [None]
